FAERS Safety Report 7589896-2 (Version None)
Quarter: 2011Q3

REPORT INFORMATION
  Report Type: 
  Country: None (occurrence: None)
  Receive Date: 20110705
  Receipt Date: 20110622
  Transmission Date: 20111222
  Serious: Yes (Other)
  Sender: FDA-Public Use
  Company Number: US-SANOFI-AVENTIS-2011SA040102

PATIENT
  Age: 75 Year
  Sex: Female

DRUGS (5)
  1. LANTUS [Suspect]
     Indication: TYPE 2 DIABETES MELLITUS
     Dosage: DOSE:5 UNIT(S)
     Route: 058
     Dates: start: 20110617
  2. GLUCOVANCE [Concomitant]
  3. SOLOSTAR [Suspect]
     Indication: TYPE 2 DIABETES MELLITUS
     Dates: start: 20110617
  4. JANUMET [Concomitant]
  5. LANTUS [Suspect]
     Route: 058
     Dates: start: 19930101

REACTIONS (8)
  - EYE DISORDER [None]
  - ROTATOR CUFF SYNDROME [None]
  - CONCUSSION [None]
  - FALL [None]
  - VISUAL IMPAIRMENT [None]
  - HYPERHIDROSIS [None]
  - HYPOGLYCAEMIA [None]
  - BLOOD GLUCOSE INCREASED [None]
